FAERS Safety Report 8479346-6 (Version None)
Quarter: 2012Q2

REPORT INFORMATION
  Report Type: 
  Country: None (occurrence: None)
  Receive Date: 20120629
  Receipt Date: 20120620
  Transmission Date: 20120825
  Serious: Yes (Hospitalization, Other)
  Sender: FDA-Public Use
  Company Number: US-JNJFOC-20120611555

PATIENT
  Age: 61 Year
  Sex: Male

DRUGS (9)
  1. NORVIR [Concomitant]
     Indication: HIV INFECTION
     Route: 065
  2. TRUVADA [Concomitant]
     Indication: HIV INFECTION
     Route: 065
  3. FTC [Concomitant]
     Indication: HIV INFECTION
     Route: 065
  4. ACETAMINOPHEN [Suspect]
     Route: 048
  5. THERAFLU [Suspect]
     Indication: INFLUENZA LIKE ILLNESS
     Dosage: ABOUT A MONTH AGO
     Route: 048
     Dates: start: 20120101, end: 20120101
  6. PREZISTA [Concomitant]
     Indication: HIV INFECTION
     Route: 065
     Dates: start: 20000101
  7. ACETAMINOPHEN [Suspect]
     Indication: INFLUENZA LIKE ILLNESS
     Dosage: ABOUT A MONTH AGO
     Route: 048
     Dates: start: 20120101, end: 20120101
  8. ISENTRESS [Concomitant]
     Indication: HIV INFECTION
     Route: 065
  9. VIREAD [Concomitant]
     Indication: HIV INFECTION
     Route: 065

REACTIONS (5)
  - GENITAL HERPES [None]
  - DRUG-INDUCED LIVER INJURY [None]
  - JAUNDICE CHOLESTATIC [None]
  - WEIGHT DECREASED [None]
  - DRUG ADMINISTRATION ERROR [None]
